FAERS Safety Report 6218805-3 (Version None)
Quarter: 2009Q2

REPORT INFORMATION
  Report Type: 
  Country: None (occurrence: None)
  Receive Date: 20090608
  Receipt Date: 20090525
  Transmission Date: 20091009
  Serious: Yes (Other)
  Sender: FDA-Public Use
  Company Number: SE-ELI_LILLY_AND_COMPANY-SE200906000927

PATIENT
  Sex: Female

DRUGS (2)
  1. YENTREVE [Suspect]
     Dosage: 80 MG, DAILY (1/D)
     Route: 064
     Dates: start: 20060201, end: 20060207
  2. FRAGMIN [Concomitant]

REACTIONS (3)
  - CHORIOAMNIONITIS [None]
  - DRUG EXPOSURE DURING PREGNANCY [None]
  - PREMATURE BABY [None]
